FAERS Safety Report 5136669-6 (Version None)
Quarter: 2006Q4

REPORT INFORMATION
  Report Type: 
  Country: None (occurrence: None)
  Receive Date: 20061027
  Receipt Date: 20060830
  Transmission Date: 20070319
  Serious: Yes (Other)
  Sender: FDA-Public Use
  Company Number: JP-MERCK-0610USA06540

PATIENT
  Age: 79 Year
  Sex: Female

DRUGS (8)
  1. TRUSOPT [Suspect]
     Indication: INTRAOCULAR PRESSURE INCREASED
     Route: 048
     Dates: start: 20060818, end: 20060826
  2. XALATAN [Suspect]
     Indication: INTRAOCULAR PRESSURE INCREASED
     Route: 047
     Dates: start: 20060818, end: 20060826
  3. CALBLOCK [Suspect]
     Route: 048
     Dates: start: 20060818
  4. DAONIL [Suspect]
     Indication: DIABETES MELLITUS
     Route: 048
     Dates: start: 20060818
  5. PRAVASTATIN SODIUM [Suspect]
     Route: 048
     Dates: start: 20060818
  6. REMODELLIN [Suspect]
     Route: 048
     Dates: start: 20060818
  7. GASLON [Suspect]
     Indication: GASTRITIS
     Route: 048
     Dates: start: 20060818
  8. AMLODIN [Suspect]
     Indication: HYPERTENSION
     Route: 048
     Dates: start: 20060818

REACTIONS (2)
  - INTRAOCULAR PRESSURE INCREASED [None]
  - MYDRIASIS [None]
